FAERS Safety Report 12187648 (Version 1)
Quarter: 2016Q1

REPORT INFORMATION
  Report Type: Spontaneous
  Country: US (occurrence: US)
  Receive Date: 20160317
  Receipt Date: 20160317
  Transmission Date: 20160526
  Serious: No
  Sender: FDA-Public Use
  Company Number: US-PERRIGO-15US005969

PATIENT
  Sex: Male
  Weight: 68.93 kg

DRUGS (5)
  1. FAMOTIDINE. [Concomitant]
     Active Substance: FAMOTIDINE
     Indication: DYSPEPSIA
     Dosage: 20 MG, QD
     Route: 048
     Dates: start: 201505, end: 20150609
  2. LEVOTHYROXINE                      /00068002/ [Concomitant]
     Dosage: 75 MCG, UNKNOWN
     Route: 048
     Dates: start: 201502
  3. NICOTINE POLACRILEX [Suspect]
     Active Substance: NICOTINE
     Indication: SMOKING CESSATION THERAPY
     Dosage: 2 MG, APPROXIMATELY 13 TIMES DAILY
     Route: 002
     Dates: start: 201505
  4. RALOXIFENE                         /01303202/ [Concomitant]
     Indication: ROUTINE HEALTH MAINTENANCE
     Dosage: UNK
     Route: 065
     Dates: start: 2015
  5. LEVOTHYROXINE                      /00068002/ [Concomitant]
     Indication: HYPOTHYROIDISM
     Dosage: 50 MCG, UNKNOWN
     Route: 048
     Dates: start: 2014, end: 201502

REACTIONS (2)
  - Nicotine dependence [Not Recovered/Not Resolved]
  - Wrong technique in product usage process [Recovered/Resolved]

NARRATIVE: CASE EVENT DATE: 2015
